FAERS Safety Report 7182901-7 (Version None)
Quarter: 2010Q4

REPORT INFORMATION
  Report Type: 
  Country: None (occurrence: None)
  Receive Date: 20101222
  Receipt Date: 20101214
  Transmission Date: 20110411
  Serious: Yes (Other)
  Sender: FDA-Public Use
  Company Number: US-RB-016911-10

PATIENT
  Age: 40 Year
  Sex: Male

DRUGS (1)
  1. MUCINEX DM [Suspect]
     Route: 048

REACTIONS (7)
  - DIZZINESS [None]
  - FEELING ABNORMAL [None]
  - HAEMOPTYSIS [None]
  - HYPERHIDROSIS [None]
  - NAUSEA [None]
  - PALPITATIONS [None]
  - VOMITING [None]
